FAERS Safety Report 9961825 (Version 1)
Quarter: 2014Q1

REPORT INFORMATION
  Report Type: Report from Study
  Country: US (occurrence: US)
  Receive Date: 20140305
  Receipt Date: 20140305
  Transmission Date: 20141002
  Serious: No
  Sender: FDA-Public Use
  Company Number: US-ABBVIE-13P-163-1113578-00

PATIENT
  Age: 30 Year
  Sex: Female

DRUGS (1)
  1. HUMIRA [Suspect]
     Indication: COLITIS ULCERATIVE
     Dates: start: 20130417

REACTIONS (5)
  - Flatulence [Recovered/Resolved]
  - Abdominal distension [Recovered/Resolved]
  - Defaecation urgency [Recovered/Resolved]
  - Mucous stools [Recovered/Resolved]
  - Haematochezia [Recovered/Resolved]
